FAERS Safety Report 4555707-2 (Version None)
Quarter: 2005Q1

REPORT INFORMATION
  Report Type: 
  Country: None (occurrence: None)
  Receive Date: 20050105
  Receipt Date: 20041005
  Transmission Date: 20050727
  Serious: No
  Sender: FDA-Public Use
  Company Number: SU-2004-002731

PATIENT
  Age: 75 Year
  Sex: Male

DRUGS (3)
  1. BENICAR HCT [Suspect]
     Indication: HYPERTENSION
     Dosage: 30.188 MG QD PO
     Route: 048
     Dates: start: 20040101
  2. LIPITOR [Concomitant]
  3. ATENOLOL [Concomitant]

REACTIONS (1)
  - BLADDER DISCOMFORT [None]
